FAERS Safety Report 7332184-X (Version None)
Quarter: 2011Q1

REPORT INFORMATION
  Report Type: 
  Country: None (occurrence: None)
  Receive Date: 20110304
  Receipt Date: 20110301
  Transmission Date: 20110831
  Serious: Yes (Death)
  Sender: FDA-Public Use
  Company Number: JP-EISAI INC-E2020-08701-SPO-JP

PATIENT
  Age: 83 Year
  Sex: Male

DRUGS (2)
  1. ARICEPT [Suspect]
     Route: 048
     Dates: start: 20110201
  2. ARICEPT [Suspect]
     Indication: DEMENTIA ALZHEIMER'S TYPE
     Route: 048
     Dates: start: 20110101, end: 20110201

REACTIONS (11)
  - SOMNOLENCE [None]
  - DEPRESSION [None]
  - GAIT DISTURBANCE [None]
  - PRURITUS [None]
  - VOMITING [None]
  - MYALGIA [None]
  - DEMENTIA ALZHEIMER'S TYPE [None]
  - URINARY INCONTINENCE [None]
  - ASTHENIA [None]
  - DECREASED APPETITE [None]
  - SPEECH DISORDER [None]
